FAERS Safety Report 7280416-9 (Version None)
Quarter: 2011Q1

REPORT INFORMATION
  Report Type: 
  Country: None (occurrence: None)
  Receive Date: 20110208
  Receipt Date: 20110203
  Transmission Date: 20110831
  Serious: Yes (Hospitalization, Disabling, Other)
  Sender: FDA-Public Use
  Company Number: US-PFIZER INC-2010133121

PATIENT
  Sex: Male

DRUGS (1)
  1. CHANTIX [Suspect]
     Indication: SMOKING CESSATION THERAPY
     Dosage: 1 MG, 2X/DAY
     Dates: start: 20090903, end: 20091114

REACTIONS (8)
  - HIP FRACTURE [None]
  - ROAD TRAFFIC ACCIDENT [None]
  - IMPAIRED DRIVING ABILITY [None]
  - AMNESIA [None]
  - DEPRESSION [None]
  - ARTHRALGIA [None]
  - FEMUR FRACTURE [None]
  - LOSS OF CONSCIOUSNESS [None]
